FAERS Safety Report 5951843-4 (Version None)
Quarter: 2008Q4

REPORT INFORMATION
  Report Type: 
  Country: None (occurrence: None)
  Receive Date: 20081113
  Receipt Date: 20081110
  Transmission Date: 20090506
  Serious: Yes (Other)
  Sender: FDA-Public Use
  Company Number: D0059415A

PATIENT
  Sex: Male

DRUGS (1)
  1. ELONTRIL [Suspect]
     Route: 048
     Dates: start: 20080501, end: 20080101

REACTIONS (1)
  - PARKINSON'S DISEASE [None]
